FAERS Safety Report 9787666 (Version 1)
Quarter: 2013Q4

REPORT INFORMATION
  Report Type: Report from Study
  Country: US (occurrence: US)
  Receive Date: 20131230
  Receipt Date: 20131230
  Transmission Date: 20140711
  Serious: Yes (Other)
  Sender: FDA-Public Use
  Company Number: US-ROCHE-1323395

PATIENT
  Sex: Male

DRUGS (5)
  1. PEGASYS [Suspect]
     Indication: HEPATITIS C
     Dosage: PROCLICK
     Route: 065
     Dates: start: 20131014
  2. COPEGUS [Suspect]
     Indication: HEPATITIS C
     Dosage: 2 TIMES DAILY AM AND PM
     Route: 065
     Dates: start: 20131014
  3. DIAZEPAM [Suspect]
     Indication: PRODUCT USED FOR UNKNOWN INDICATION
     Dosage: DAILY
     Route: 048
  4. LISINOPRIL [Concomitant]
     Dosage: DAILY
     Route: 048
  5. MIRTAZAPINE [Concomitant]
     Route: 048

REACTIONS (11)
  - Suicidal ideation [Unknown]
  - Fatigue [Unknown]
  - Depression [Unknown]
  - Abdominal pain [Unknown]
  - Constipation [Unknown]
  - Diarrhoea [Unknown]
  - Vomiting [Unknown]
  - Headache [Unknown]
  - Insomnia [Unknown]
  - Decreased appetite [Unknown]
  - Weight decreased [Unknown]
